FAERS Safety Report 23220998 (Version 2)
Quarter: 2023Q4

REPORT INFORMATION
  Report Type: Spontaneous
  Country: JP (occurrence: JP)
  Receive Date: 20231123
  Receipt Date: 20231218
  Transmission Date: 20240110
  Serious: Yes (Death, Other)
  Sender: FDA-Public Use
  Company Number: JP-AMGEN-JPNSP2023209285

PATIENT
  Age: 79 Year
  Sex: Male

DRUGS (1)
  1. EVENITY [Suspect]
     Active Substance: ROMOSOZUMAB-AQQG
     Indication: Product used for unknown indication
     Dosage: 210 MILLIGRAM
     Route: 058
     Dates: start: 202107, end: 202108

REACTIONS (4)
  - Hypoxic-ischaemic encephalopathy [Fatal]
  - Cardio-respiratory arrest [Fatal]
  - Infection [Fatal]
  - Acute myocardial infarction [Unknown]
